FAERS Safety Report 6701096-4 (Version None)
Quarter: 2010Q2

REPORT INFORMATION
  Report Type: 
  Country: None (occurrence: None)
  Receive Date: 20100428
  Receipt Date: 20100416
  Transmission Date: 20101027
  Serious: Yes (Hospitalization)
  Sender: FDA-Public Use
  Company Number: JP-ELI_LILLY_AND_COMPANY-JP201004003725

PATIENT
  Age: 38 Year
  Sex: Female

DRUGS (4)
  1. ZYPREXA [Suspect]
     Indication: SCHIZOPHRENIA
     Dosage: 20 MG, EACH EVENING
     Route: 048
     Dates: start: 20100328, end: 20100328
  2. ZYPREXA [Suspect]
     Dosage: 20 MG, EACH EVENING
     Route: 048
     Dates: start: 20100330, end: 20100331
  3. BUFFERIN [Concomitant]
     Dosage: 1 D/F, EACH MORNING
     Route: 048
     Dates: start: 20100301, end: 20100331
  4. ASPIRIN [Concomitant]
     Dosage: 1 D/F, EACH MORNING
     Route: 048
     Dates: start: 20100401

REACTIONS (2)
  - BACK PAIN [None]
  - ELECTROCARDIOGRAM ABNORMAL [None]
